FAERS Safety Report 18518393 (Version 4)
Quarter: 2021Q3

REPORT INFORMATION
  Report Type: Report from Study
  Country: CO (occurrence: CO)
  Receive Date: 20201118
  Receipt Date: 20210927
  Transmission Date: 20211014
  Serious: Yes (Hospitalization, Other)
  Sender: FDA-Public Use
  Company Number: NVSC2020CO291018

PATIENT
  Age: 70 Year
  Sex: Female
  Weight: 67 kg

DRUGS (7)
  1. XOLAIR [Suspect]
     Active Substance: OMALIZUMAB
     Indication: ASTHMA
     Dosage: 600 MG, QMO
     Route: 058
     Dates: start: 20161124
  2. METFORMIN [Suspect]
     Active Substance: METFORMIN HYDROCHLORIDE
     Indication: PRODUCT USED FOR UNKNOWN INDICATION
     Dosage: 850 MG
     Route: 065
  3. XOLAIR [Suspect]
     Active Substance: OMALIZUMAB
     Dosage: 150 MG, QMO
     Route: 058
     Dates: end: 20201021
  4. XOLAIR [Suspect]
     Active Substance: OMALIZUMAB
     Dosage: 300 MG, EVERY 15 DAYS
     Route: 058
     Dates: start: 20201021
  5. XOLAIR [Suspect]
     Active Substance: OMALIZUMAB
     Dosage: 600 MG, QMO
     Route: 058
  6. XOLAIR [Suspect]
     Active Substance: OMALIZUMAB
     Dosage: 300 MG, ONCE EVERY 2 WEEKS
     Route: 058
  7. MONTELUKAST [Suspect]
     Active Substance: MONTELUKAST SODIUM
     Indication: COUGH
     Dosage: 10 MG, Q12H
     Route: 048

REACTIONS (8)
  - Choking [Not Recovered/Not Resolved]
  - Blood glucose increased [Recovered/Resolved]
  - Asthmatic crisis [Recovered/Resolved]
  - Asthmatic crisis [Recovered/Resolved]
  - Cough [Not Recovered/Not Resolved]
  - Fatigue [Unknown]
  - Dyspnoea [Unknown]
  - Overdose [Unknown]

NARRATIVE: CASE EVENT DATE: 20191105
